FAERS Safety Report 19684693 (Version 1)
Quarter: 2021Q3

REPORT INFORMATION
  Report Type: Spontaneous
  Country: TW (occurrence: TW)
  Receive Date: 20210811
  Receipt Date: 20210811
  Transmission Date: 20211014
  Serious: Yes (Hospitalization, Other)
  Sender: FDA-Public Use
  Company Number: TW-LOTUS-2021-LOTUS-000833

PATIENT
  Age: 31 Year
  Sex: Female

DRUGS (1)
  1. METHOTREXATE. [Suspect]
     Active Substance: METHOTREXATE
     Indication: ACUTE MYELOID LEUKAEMIA
     Dosage: TOTAL ACCUMULATIVE DOSE OF IT MTX WAS 120 MG (12 MG X 10 SESSIONS).
     Route: 037

REACTIONS (1)
  - Myelopathy [Recovering/Resolving]
